FAERS Safety Report 8830744 (Version 2)
Quarter: 2012Q4

REPORT INFORMATION
  Report Type: 
  Country: MX (occurrence: MX)
  Receive Date: 20121009
  Receipt Date: 20121018
  Transmission Date: 20130627
  Serious: No
  Sender: FDA-Public Use
  Company Number: MX-NOVOPROD-361359

PATIENT
  Age: 65 Year
  Sex: Female
  Weight: 65 kg

DRUGS (3)
  1. NOVORAPID FLEXPEN [Suspect]
     Indication: DIABETES MELLITUS
     Dosage: 4 IU, qd
     Route: 065
     Dates: start: 20120918
  2. NOVORAPID FLEXPEN [Suspect]
     Dosage: 4 IU, qd
     Dates: start: 20120919
  3. NOVORAPID FLEXPEN [Suspect]
     Dosage: UNK
     Dates: end: 20120920

REACTIONS (1)
  - Angioedema [Recovered/Resolved]
